FAERS Safety Report 25335567 (Version 1)
Quarter: 2025Q2

REPORT INFORMATION
  Report Type: Report from Study
  Country: FR (occurrence: FR)
  Receive Date: 20250520
  Receipt Date: 20250520
  Transmission Date: 20250717
  Serious: Yes (Other)
  Sender: ROCHE
  Company Number: FR-ROCHE-10000288017

PATIENT

DRUGS (2)
  1. RITUXIMAB [Suspect]
     Active Substance: RITUXIMAB
     Indication: Pemphigus
     Route: 042
  2. RITUXIMAB [Suspect]
     Active Substance: RITUXIMAB
     Indication: Pemphigus

REACTIONS (12)
  - Off label use [Unknown]
  - Pneumonia [Unknown]
  - Pulmonary embolism [Unknown]
  - Musculoskeletal disorder [Unknown]
  - Diabetes mellitus [Unknown]
  - Endocrine disorder [Unknown]
  - Mental disorder [Unknown]
  - Sepsis [Unknown]
  - Urinary tract infection [Unknown]
  - Cardiac failure [Unknown]
  - Hepatic cytolysis [Unknown]
  - Neutropenia [Unknown]
